FAERS Safety Report 21603965 (Version 1)
Quarter: 2022Q4

REPORT INFORMATION
  Report Type: Report from Study
  Country: PR (occurrence: PR)
  Receive Date: 20221116
  Receipt Date: 20221116
  Transmission Date: 20230112
  Serious: No
  Sender: FDA-Public Use
  Company Number: PR-ABBVIE-4157026

PATIENT
  Age: 36 Year
  Sex: Female
  Weight: 84.368 kg

DRUGS (4)
  1. HUMIRA [Suspect]
     Active Substance: ADALIMUMAB
     Indication: Crohn^s disease
     Dosage: 40MG/0.4ML
     Route: 058
  2. HUMIRA [Suspect]
     Active Substance: ADALIMUMAB
     Dosage: 0.8 ML
     Route: 058
     Dates: start: 20150604
  3. PFIZER-BIONTECH COVID-19 VACCINE [Concomitant]
     Active Substance: TOZINAMERAN
     Indication: COVID-19
     Dosage: 1ST DOSE
     Route: 030
     Dates: start: 20210505, end: 20210505
  4. PFIZER-BIONTECH COVID-19 VACCINE [Concomitant]
     Active Substance: TOZINAMERAN
     Indication: COVID-19
     Dosage: 2ND DOSE
     Route: 030
     Dates: start: 20210604, end: 20210604

REACTIONS (6)
  - Vitamin D decreased [Not Recovered/Not Resolved]
  - Bipolar disorder [Recovered/Resolved]
  - Restlessness [Unknown]
  - Haemoglobin decreased [Not Recovered/Not Resolved]
  - Aggression [Unknown]
  - Insomnia [Unknown]

NARRATIVE: CASE EVENT DATE: 20220901
